FAERS Safety Report 25683878 (Version 1)
Quarter: 2025Q3

REPORT INFORMATION
  Report Type: Report from Study
  Country: US (occurrence: US)
  Receive Date: 20250814
  Receipt Date: 20250814
  Transmission Date: 20251021
  Serious: Yes (Other)
  Sender: ELI LILLY AND COMPANY
  Company Number: US-ELI_LILLY_AND_COMPANY-US202306016091

PATIENT
  Age: 65 Year
  Sex: Female

DRUGS (8)
  1. RETEVMO [Suspect]
     Active Substance: SELPERCATINIB
     Indication: Lung cancer metastatic
     Dosage: 160 MG, BID (MORNING AND NIGHT)
     Route: 048
     Dates: start: 20230117
  2. RETEVMO [Suspect]
     Active Substance: SELPERCATINIB
     Dosage: 120 MG, BID
     Route: 048
  3. RETEVMO [Suspect]
     Active Substance: SELPERCATINIB
     Dosage: 80 MG, BID
     Route: 048
  4. RETEVMO [Suspect]
     Active Substance: SELPERCATINIB
     Dosage: 80 MG, BID
     Route: 048
  5. RETEVMO [Suspect]
     Active Substance: SELPERCATINIB
     Dosage: 80 MG, BID (MORNING AND NIGHT)
     Route: 048
  6. RETEVMO [Suspect]
     Active Substance: SELPERCATINIB
     Dosage: 80 MG, BID
     Route: 048
  7. RETEVMO [Suspect]
     Active Substance: SELPERCATINIB
     Indication: Lung cancer metastatic
     Dosage: 80 MG, BID
     Route: 048
  8. VITAMINS NOS [Concomitant]
     Active Substance: VITAMINS
     Indication: Vitamin supplementation

REACTIONS (10)
  - Hepatic enzyme increased [Recovered/Resolved]
  - Pain in extremity [Unknown]
  - Anxiety [Unknown]
  - Alopecia [Not Recovered/Not Resolved]
  - Ocular discomfort [Not Recovered/Not Resolved]
  - Visual impairment [Not Recovered/Not Resolved]
  - Dental caries [Not Recovered/Not Resolved]
  - Eye swelling [Not Recovered/Not Resolved]
  - Arthralgia [Unknown]
  - Hypersensitivity [Unknown]

NARRATIVE: CASE EVENT DATE: 20230301
